FAERS Safety Report 5260775-9 (Version None)
Quarter: 2007Q1

REPORT INFORMATION
  Report Type: 
  Country: None (occurrence: None)
  Receive Date: 20070309
  Receipt Date: 20070228
  Transmission Date: 20070707
  Serious: Yes (Death, Hospitalization, Disabling)
  Sender: FDA-Public Use
  Company Number: 2006UW21603

PATIENT
  Age: 88 Year
  Sex: Male
  Weight: 86.4 kg

DRUGS (3)
  1. SEROQUEL [Suspect]
     Route: 048
     Dates: start: 20050101
  2. HALDOL [Concomitant]
     Dates: start: 20050317
  3. EXELON [Concomitant]

REACTIONS (3)
  - DEATH [None]
  - DIABETES MELLITUS [None]
  - LOSS OF CONSCIOUSNESS [None]
